FAERS Safety Report 4907511-0 (Version None)
Quarter: 2006Q1

REPORT INFORMATION
  Report Type: 
  Country: None (occurrence: None)
  Receive Date: 20060210
  Receipt Date: 20060201
  Transmission Date: 20060701
  Serious: Yes (Hospitalization)
  Sender: FDA-Public Use
  Company Number: SE-MERCK-0602SWE00004

PATIENT
  Age: 60 Year
  Sex: Female

DRUGS (12)
  1. VIOXX [Suspect]
     Indication: RHEUMATOID ARTHRITIS
     Route: 048
     Dates: start: 20040401, end: 20041001
  2. FOSAMAX [Concomitant]
     Route: 065
  3. LANSOPRAZOLE [Concomitant]
     Route: 065
  4. METHOTREXATE [Concomitant]
     Route: 065
  5. FOLIC ACID [Concomitant]
     Route: 065
  6. BENDROFLUMETHIAZIDE AND POTASSIUM CHLORIDE [Concomitant]
     Route: 065
  7. PREDNISOLONE [Concomitant]
     Route: 065
  8. ATENOLOL [Concomitant]
     Route: 065
  9. KETOPROFEN [Concomitant]
     Route: 065
  10. CYCLOSPORINE [Concomitant]
     Route: 065
  11. COZAAR [Concomitant]
     Route: 065
  12. INSULIN, BIPHASIC ISOPHANE [INJECTION] [Concomitant]
     Route: 065

REACTIONS (1)
  - CEREBRAL INFARCTION [None]
